FAERS Safety Report 5629702-6 (Version None)
Quarter: 2008Q1

REPORT INFORMATION
  Report Type: 
  Country: None (occurrence: None)
  Receive Date: 20080214
  Receipt Date: 20080204
  Transmission Date: 20080703
  Serious: Yes (Hospitalization, Other)
  Sender: FDA-Public Use
  Company Number: 2008BI002959

PATIENT
  Sex: Female

DRUGS (1)
  1. AVONEX [Suspect]
     Dosage: ;IM
     Route: 030
     Dates: start: 20020901

REACTIONS (6)
  - APPENDICECTOMY [None]
  - CONVULSION [None]
  - GALLBLADDER OPERATION [None]
  - OVARIAN OPERATION [None]
  - SMALL INTESTINE OPERATION [None]
  - UTERINE OPERATION [None]
